FAERS Safety Report 5372256-2 (Version None)
Quarter: 2007Q2

REPORT INFORMATION
  Report Type: 
  Country: None (occurrence: None)
  Receive Date: 20070618
  Receipt Date: 20070430
  Transmission Date: 20071010
  Serious: Yes (Other)
  Sender: FDA-Public Use
  Company Number: 07-033

PATIENT
  Age: 66 Year
  Sex: Female
  Weight: 72.5755 kg

DRUGS (4)
  1. ALEVE [Suspect]
     Indication: ARTHRALGIA
     Dosage: 440 MG, DAILY, ORAL
     Route: 048
     Dates: start: 20070422
  2. ALEVE [Suspect]
     Dosage: DAILY, ORAL
     Route: 048
  3. SEROQUEL [Concomitant]
  4. NORVASC [Concomitant]

REACTIONS (2)
  - NAUSEA [None]
  - RECTAL HAEMORRHAGE [None]
